FAERS Safety Report 12818718 (Version 2)
Quarter: 2016Q4

REPORT INFORMATION
  Report Type: Spontaneous
  Country: CN (occurrence: CN)
  Receive Date: 20161006
  Receipt Date: 20161121
  Transmission Date: 20170207
  Serious: Yes (Other)
  Sender: FDA-Public Use
  Company Number: CN-BAYER-2016-190103

PATIENT
  Age: 15 Year
  Sex: Male

DRUGS (3)
  1. KOGENATE FS [Suspect]
     Active Substance: ANTIHEMOPHILIC FACTOR, HUMAN RECOMBINANT
     Indication: FACTOR VIII DEFICIENCY
     Dosage: DAILY DOSE 250 IU
     Route: 042
     Dates: start: 2013, end: 2014
  2. KOGENATE FS [Suspect]
     Active Substance: ANTIHEMOPHILIC FACTOR, HUMAN RECOMBINANT
     Indication: FACTOR VIII DEFICIENCY
     Dosage: DAILY DOSE 250 IU
     Route: 042
     Dates: start: 2014, end: 2015
  3. KOGENATE FS [Suspect]
     Active Substance: ANTIHEMOPHILIC FACTOR, HUMAN RECOMBINANT
     Indication: FACTOR VIII DEFICIENCY
     Dosage: INCREASED DOSE, NOT FURTHER SPECIFIED
     Route: 042
     Dates: start: 2014, end: 2016

REACTIONS (3)
  - Synovial disorder [None]
  - Spontaneous haemorrhage [None]
  - Spontaneous haemorrhage [None]

NARRATIVE: CASE EVENT DATE: 2013
